FAERS Safety Report 6287707-9 (Version None)
Quarter: 2009Q3

REPORT INFORMATION
  Report Type: 
  Country: None (occurrence: None)
  Receive Date: 20090717
  Receipt Date: 20090309
  Transmission Date: 20100115
  Serious: Yes (Death)
  Sender: FDA-Public Use
  Company Number: 2009SP005376

PATIENT
  Age: 57 Year
  Sex: Male

DRUGS (4)
  1. INTEGRILIN [Suspect]
     Indication: DRUG USE FOR UNKNOWN INDICATION
     Dates: start: 20090228
  2. PLAVIX [Suspect]
     Indication: DRUG USE FOR UNKNOWN INDICATION
  3. HEPARIN [Suspect]
     Indication: DRUG USE FOR UNKNOWN INDICATION
  4. ASPIRIN [Suspect]
     Indication: DRUG USE FOR UNKNOWN INDICATION

REACTIONS (1)
  - HAEMORRHAGE INTRACRANIAL [None]
